FAERS Safety Report 8415862-0 (Version None)
Quarter: 2012Q2

REPORT INFORMATION
  Report Type: 
  Country: None (occurrence: None)
  Receive Date: 20120606
  Receipt Date: 20120528
  Transmission Date: 20120825
  Serious: Yes (Other)
  Sender: FDA-Public Use
  Company Number: IT-JNJFOC-20120511236

PATIENT
  Age: 40 Year
  Sex: Female

DRUGS (6)
  1. HALDOL [Suspect]
     Indication: INTENTIONAL OVERDOSE
     Route: 048
  2. HALDOL [Suspect]
     Route: 048
     Dates: start: 20120510, end: 20120510
  3. HALDOL [Suspect]
     Route: 048
     Dates: start: 20120510, end: 20120510
  4. HALDOL [Suspect]
     Indication: PRODUCT USED FOR UNKNOWN INDICATION
     Route: 048
  5. EN [Suspect]
     Indication: PRODUCT USED FOR UNKNOWN INDICATION
     Route: 048
     Dates: start: 20120510, end: 20120510
  6. MUTABON [Suspect]
     Indication: PRODUCT USED FOR UNKNOWN INDICATION
     Route: 048
     Dates: start: 20120510, end: 20120510

REACTIONS (2)
  - SELF INJURIOUS BEHAVIOUR [None]
  - MULTIPLE DRUG OVERDOSE INTENTIONAL [None]
